FAERS Safety Report 7137417-0 (Version None)
Quarter: 2010Q4

REPORT INFORMATION
  Report Type: 
  Country: None (occurrence: None)
  Receive Date: 20101119
  Receipt Date: 20100805
  Transmission Date: 20110411
  Serious: No
  Sender: FDA-Public Use
  Company Number: DSA_44253_2010

PATIENT
  Sex: Male

DRUGS (1)
  1. XENAZINE [Suspect]
     Indication: TIC
     Dosage: (12.5 MG TID ORAL)
     Route: 048
     Dates: start: 20100410, end: 20100805

REACTIONS (1)
  - ADVERSE DRUG REACTION [None]
